FAERS Safety Report 6634369-4 (Version None)
Quarter: 2010Q1

REPORT INFORMATION
  Report Type: 
  Country: None (occurrence: None)
  Receive Date: 20100315
  Receipt Date: 20100312
  Transmission Date: 20100710
  Serious: Yes (Hospitalization)
  Sender: FDA-Public Use
  Company Number: FR-ROCHE-590205

PATIENT
  Sex: Male
  Weight: 55 kg

DRUGS (10)
  1. CAPECITABINE [Suspect]
     Dosage: TEMPORARILY INTERRUPTED.
     Route: 048
     Dates: start: 20080916, end: 20081007
  2. CAPECITABINE [Suspect]
     Dosage: RESTARTED.
     Route: 048
     Dates: start: 20081021
  3. PLACEBO [Suspect]
     Dosage: DOSE FORM: INFUSION DRUG TEMPORARILY INTERRUPTED.
     Route: 042
     Dates: start: 20080916, end: 20081007
  4. PLACEBO [Suspect]
     Dosage: RESTARTED.  DOSE BLINDED.
     Route: 042
     Dates: start: 20081021
  5. CISPLATIN [Suspect]
     Dosage: DOSE FORM: INFUSION DRUG TEMPORARILY INTERRUPTED
     Route: 042
     Dates: start: 20080916, end: 20081007
  6. CISPLATIN [Suspect]
     Dosage: RESTARTED.
     Route: 042
     Dates: start: 20081021
  7. RILMENIDINE [Concomitant]
  8. FENOFIBRATE [Concomitant]
  9. ALLOPURINOL [Concomitant]
     Dates: start: 20081003
  10. LENOGRASTIM [Concomitant]
     Dates: start: 20081003, end: 20081006

REACTIONS (1)
  - GENERAL PHYSICAL HEALTH DETERIORATION [None]
